FAERS Safety Report 22096168 (Version 3)
Quarter: 2025Q1

REPORT INFORMATION
  Report Type: Spontaneous
  Country: CN (occurrence: CN)
  Receive Date: 20230315
  Receipt Date: 20250117
  Transmission Date: 20250409
  Serious: Yes (Other)
  Sender: NOVARTIS
  Company Number: CN-002147023-NVSC2023CN053184

PATIENT
  Age: 57 Year
  Sex: Male
  Weight: 68 kg

DRUGS (3)
  1. BRINZOLAMIDE\TIMOLOL MALEATE [Suspect]
     Active Substance: BRINZOLAMIDE\TIMOLOL MALEATE
     Indication: Open angle glaucoma
     Dosage: 1 DRP, BID
     Route: 047
     Dates: start: 20230221, end: 20230223
  2. DEXAMETHASONE SODIUM PHOSPHATE [Concomitant]
     Active Substance: DEXAMETHASONE SODIUM PHOSPHATE
     Indication: Product used for unknown indication
     Route: 042
  3. BUDESONIDE [Concomitant]
     Active Substance: BUDESONIDE
     Indication: Product used for unknown indication
     Route: 065

REACTIONS (4)
  - Chest discomfort [Recovering/Resolving]
  - Dyspnoea [Recovering/Resolving]
  - Rash [Recovered/Resolved]
  - Cough [Recovering/Resolving]

NARRATIVE: CASE EVENT DATE: 20230223
